FAERS Safety Report 15325153 (Version 2)
Quarter: 2018Q3

REPORT INFORMATION
  Report Type: Spontaneous
  Country: CA (occurrence: CA)
  Receive Date: 20180828
  Receipt Date: 20180903
  Transmission Date: 20181010
  Serious: Yes (Other)
  Sender: FDA-Public Use
  Company Number: CA-APOTEX-2018AP019507

PATIENT
  Sex: Male

DRUGS (1)
  1. APO?CELECOXIB [Suspect]
     Active Substance: CELECOXIB
     Indication: PRODUCT USED FOR UNKNOWN INDICATION
     Dosage: 1 DF, UNK
     Route: 065
     Dates: start: 20180813

REACTIONS (7)
  - Syncope [Unknown]
  - Pruritus [Unknown]
  - Oesophageal discomfort [Unknown]
  - Hypersensitivity [Unknown]
  - Rash [Unknown]
  - Product substitution issue [Unknown]
  - Dyspnoea [Unknown]
